FAERS Safety Report 6469239-8 (Version None)
Quarter: 2009Q4

REPORT INFORMATION
  Report Type: 
  Country: None (occurrence: None)
  Receive Date: 20091203
  Receipt Date: 20080114
  Transmission Date: 20100525
  Serious: Yes (Life-Threatening, Other)
  Sender: FDA-Public Use
  Company Number: US-ELI_LILLY_AND_COMPANY-2006PV022708

PATIENT
  Sex: Female
  Weight: 74.83 kg

DRUGS (10)
  1. EXENATIDE [Suspect]
     Indication: TYPE 2 DIABETES MELLITUS
     Dosage: 10 UG, 2/D
     Route: 058
     Dates: start: 20060811, end: 20060823
  2. EXENATIDE [Suspect]
     Dosage: 5 UG, 2/D
     Route: 058
     Dates: start: 20060717, end: 20060810
  3. NOVOLOG [Concomitant]
     Dosage: UNK, AS NEEDED
  4. LANTUS [Concomitant]
     Dosage: UNK, UNK
  5. HYZAAR [Concomitant]
     Dosage: UNK, UNKNOWN
     Route: 065
  6. LIPITOR [Concomitant]
     Dosage: UNK, UNKNOWN
     Route: 065
  7. ZETIA [Concomitant]
     Dosage: UNK, UNKNOWN
     Route: 065
  8. CRESTOR [Concomitant]
     Dosage: UNK, UNKNOWN
     Route: 065
  9. XENICAL [Concomitant]
     Dosage: UNK, AS NEEDED
     Route: 065
  10. WELCHOL [Concomitant]
     Dosage: UNK, UNKNOWN
     Route: 065

REACTIONS (6)
  - BLOOD GLUCOSE INCREASED [None]
  - DIABETIC KETOACIDOSIS [None]
  - DYSPNOEA [None]
  - PANCREATITIS [None]
  - TYPE 1 DIABETES MELLITUS [None]
  - WEIGHT DECREASED [None]
